FAERS Safety Report 7683586-3 (Version None)
Quarter: 2011Q3

REPORT INFORMATION
  Report Type: 
  Country: None (occurrence: None)
  Receive Date: 20110815
  Receipt Date: 20110808
  Transmission Date: 20111222
  Serious: Yes (Other)
  Sender: FDA-Public Use
  Company Number: US-B.I. PHARMACEUTICALS,INC./RIDGEFIELD-2011-BP-19468BP

PATIENT
  Sex: Female

DRUGS (18)
  1. SYNTHROID [Concomitant]
     Indication: THYROID DISORDER
     Route: 048
  2. CITALOPRAM HYDROBROMIDE [Concomitant]
     Indication: DEPRESSION
     Route: 048
  3. FEMARA [Concomitant]
     Indication: BREAST CANCER
     Route: 048
  4. CO Q 10 [Concomitant]
     Indication: ROUTINE HEALTH MAINTENANCE
     Route: 048
  5. IMIPRAMINE [Concomitant]
     Indication: DEPRESSION
     Route: 048
  6. FUROSEMIDE [Concomitant]
     Indication: CARDIAC FAILURE CONGESTIVE
     Route: 048
  7. GLUCOSAMINE [Concomitant]
     Indication: ROUTINE HEALTH MAINTENANCE
     Route: 048
  8. PRADAXA [Suspect]
     Indication: ATRIAL FIBRILLATION
     Dosage: 300 MG
     Route: 048
     Dates: start: 20110201
  9. MSM [Concomitant]
     Indication: ROUTINE HEALTH MAINTENANCE
     Route: 048
  10. DIGOXIN [Concomitant]
     Route: 048
  11. THYROID MEDICATION [Concomitant]
     Indication: THYROID DISORDER
     Route: 048
  12. ALPHA LIPOIC ACID [Concomitant]
     Route: 048
  13. LISINOPRIL [Concomitant]
     Indication: HYPERTENSION
     Route: 048
  14. TYLENOL-500 [Concomitant]
     Route: 048
  15. INSULIN [Concomitant]
     Indication: DIABETES MELLITUS
     Route: 058
  16. MELATONIN [Concomitant]
     Route: 048
  17. MAGNESIUM [Concomitant]
     Indication: ROUTINE HEALTH MAINTENANCE
     Route: 048
  18. CARVEDILOL [Concomitant]
     Route: 048

REACTIONS (1)
  - ANAEMIA [None]
